FAERS Safety Report 9607439 (Version 1)
Quarter: 2013Q4

REPORT INFORMATION
  Report Type: Spontaneous
  Country: US (occurrence: None)
  Receive Date: 20131007
  Receipt Date: 20131007
  Transmission Date: 20140711
  Serious: Yes (Other)
  Sender: FDA-Public Use
  Company Number: None

PATIENT
  Age: 29 Year
  Sex: Female
  Weight: 61.24 kg

DRUGS (1)
  1. NUVARING [Suspect]
     Indication: CONTRACEPTION

REACTIONS (7)
  - Anxiety [None]
  - Crying [None]
  - Headache [None]
  - Nausea [None]
  - Insomnia [None]
  - Decreased appetite [None]
  - Irritability [None]
